FAERS Safety Report 5257402-3 (Version None)
Quarter: 2007Q1

REPORT INFORMATION
  Report Type: 
  Country: None (occurrence: None)
  Receive Date: 20070307
  Receipt Date: 20060814
  Transmission Date: 20070707
  Serious: No
  Sender: FDA-Public Use
  Company Number: US-GLAXOSMITHKLINE-A0612825A

PATIENT
  Age: 65 Year
  Sex: Female

DRUGS (6)
  1. REQUIP [Suspect]
     Indication: RESTLESS LEGS SYNDROME
     Dosage: 1MG TWICE PER DAY
     Route: 048
     Dates: start: 20060701
  2. SYNTHROID [Concomitant]
  3. DARVON [Concomitant]
  4. AMITRIPTYLINE HCL [Concomitant]
  5. DARVOCET [Concomitant]
  6. VITAMIN E [Concomitant]

REACTIONS (2)
  - DRUG INEFFECTIVE [None]
  - RESTLESS LEGS SYNDROME [None]
